FAERS Safety Report 8367430-7 (Version None)
Quarter: 2012Q2

REPORT INFORMATION
  Report Type: 
  Country: None (occurrence: None)
  Receive Date: 20120517
  Receipt Date: 20120120
  Transmission Date: 20120825
  Serious: No
  Sender: FDA-Public Use
  Company Number: US-GLAXOSMITHKLINE-A0962432A

PATIENT
  Age: 60 Year
  Sex: Male

DRUGS (10)
  1. AVAPRO [Concomitant]
  2. ASPIRIN [Concomitant]
  3. SUDAFED 12 HOUR [Concomitant]
  4. VOTRIENT [Suspect]
     Indication: THYROID CANCER
     Dosage: 800MG PER DAY
     Route: 048
     Dates: start: 20111127
  5. FINASTERIDE [Concomitant]
  6. VIAGRA [Concomitant]
  7. PRAVASTATIN [Concomitant]
  8. FLOMAX [Concomitant]
  9. ASMANEX TWISTHALER [Concomitant]
  10. LEVOXYL [Concomitant]

REACTIONS (9)
  - DIARRHOEA [None]
  - SKIN EXFOLIATION [None]
  - NAUSEA [None]
  - HAIR COLOUR CHANGES [None]
  - BLOOD PRESSURE INCREASED [None]
  - HYPERKERATOSIS [None]
  - HYPOGEUSIA [None]
  - BLISTER [None]
  - STOMATITIS [None]
